FAERS Safety Report 7387067-6 (Version None)
Quarter: 2011Q1

REPORT INFORMATION
  Report Type: 
  Country: None (occurrence: None)
  Receive Date: 20110331
  Receipt Date: 20110323
  Transmission Date: 20110831
  Serious: Yes (Hospitalization, Disabling, Other)
  Sender: FDA-Public Use
  Company Number: US-MERCK-0902USA00148

PATIENT
  Age: 62 Year
  Sex: Female
  Weight: 53 kg

DRUGS (7)
  1. FOSAMAX [Suspect]
     Indication: FIBROMYALGIA
     Route: 048
     Dates: start: 20040101, end: 20070101
  2. [THERAPY UNSPECIFIED] [Concomitant]
     Indication: HYPERTENSION
     Route: 065
     Dates: start: 20010101
  3. FOSAMAX [Suspect]
     Route: 048
     Dates: start: 20070801, end: 20080101
  4. FOSAMAX [Suspect]
     Indication: OSTEOPOROSIS
     Route: 048
     Dates: start: 20040101, end: 20070101
  5. FOSAMAX [Suspect]
     Route: 065
     Dates: start: 20010529, end: 20080201
  6. FOSAMAX [Suspect]
     Route: 048
     Dates: start: 20070801, end: 20080101
  7. FOSAMAX [Suspect]
     Route: 065
     Dates: start: 20010529, end: 20080201

REACTIONS (73)
  - ADVERSE EVENT [None]
  - DYSURIA [None]
  - SPINAL OSTEOARTHRITIS [None]
  - JOINT RANGE OF MOTION DECREASED [None]
  - JAW DISORDER [None]
  - TOOTH ABSCESS [None]
  - TEMPOROMANDIBULAR JOINT SYNDROME [None]
  - WEIGHT INCREASED [None]
  - PERIODIC LIMB MOVEMENT DISORDER [None]
  - FALL [None]
  - ANXIETY [None]
  - URINARY TRACT INFECTION [None]
  - ADVERSE DRUG REACTION [None]
  - PARAESTHESIA [None]
  - RADIUS FRACTURE [None]
  - MAJOR DEPRESSION [None]
  - INTERVERTEBRAL DISC PROTRUSION [None]
  - LEFT ATRIAL DILATATION [None]
  - MITRAL VALVE INCOMPETENCE [None]
  - SEPSIS [None]
  - OSTEORADIONECROSIS [None]
  - LUMBAR RADICULOPATHY [None]
  - TRISMUS [None]
  - IMPAIRED HEALING [None]
  - STOMATITIS [None]
  - ABDOMINAL DISCOMFORT [None]
  - SACROILIITIS [None]
  - POST LAMINECTOMY SYNDROME [None]
  - NECK PAIN [None]
  - MYALGIA [None]
  - ROAD TRAFFIC ACCIDENT [None]
  - HYPERLIPIDAEMIA [None]
  - FIBROMYALGIA [None]
  - EXOSTOSIS [None]
  - OSTEONECROSIS OF JAW [None]
  - PAIN MANAGEMENT [None]
  - PULMONARY VALVE INCOMPETENCE [None]
  - MENTAL DISORDER [None]
  - MUSCULOSKELETAL CHEST PAIN [None]
  - BRUXISM [None]
  - DIZZINESS [None]
  - MUSCLE SPASMS [None]
  - SLEEP APNOEA SYNDROME [None]
  - RADICULOPATHY [None]
  - POST-TRAUMATIC STRESS DISORDER [None]
  - GINGIVAL INFECTION [None]
  - ARTHROPATHY [None]
  - DRUG HYPERSENSITIVITY [None]
  - DENTAL CARIES [None]
  - PSYCHOTIC DISORDER [None]
  - TOOTH DISORDER [None]
  - TYPE 2 DIABETES MELLITUS [None]
  - FATIGUE [None]
  - DEHYDRATION [None]
  - ATELECTASIS [None]
  - DENTAL DISCOMFORT [None]
  - FRUSTRATION [None]
  - BURNS SECOND DEGREE [None]
  - BLISTER [None]
  - BONE PAIN [None]
  - INTERVERTEBRAL DISC DISORDER [None]
  - BACK PAIN [None]
  - ORAL DISORDER [None]
  - OEDEMA PERIPHERAL [None]
  - HAEMORRHOIDS [None]
  - BACK INJURY [None]
  - SPINAL CORD DISORDER [None]
  - EYE SWELLING [None]
  - EDENTULOUS [None]
  - DEPRESSION [None]
  - SWELLING [None]
  - ORAL INFECTION [None]
  - HYPOGLYCAEMIA [None]
